FAERS Safety Report 6602909-7 (Version None)
Quarter: 2010Q1

REPORT INFORMATION
  Report Type: 
  Country: None (occurrence: None)
  Receive Date: 20100226
  Receipt Date: 20100218
  Transmission Date: 20100710
  Serious: Yes (Hospitalization)
  Sender: FDA-Public Use
  Company Number: US-ASTRAZENECA-2009SE21073

PATIENT
  Age: 70 Year
  Sex: Female

DRUGS (2)
  1. NEXIUM [Suspect]
     Indication: BURNING SENSATION
     Route: 048
  2. SYMBICORT [Suspect]
     Indication: BRONCHITIS
     Dosage: 160/4.5 MCG ,TWO PUFFS
     Route: 055
     Dates: start: 20090501

REACTIONS (2)
  - ASTHMA [None]
  - MEDICATION ERROR [None]
